APPROVED DRUG PRODUCT: FORTICAL
Active Ingredient: CALCITONIN SALMON RECOMBINANT
Strength: 200 IU/SPRAY **Federal Register determination that product was not discontinued or withdrawn for safety or effectiveness reasons**
Dosage Form/Route: SPRAY, METERED;NASAL
Application: N021406 | Product #001
Applicant: UPSHER SMITH LABORATORIES LLC
Approved: Aug 12, 2005 | RLD: No | RS: No | Type: DISCN